FAERS Safety Report 26045384 (Version 3)
Quarter: 2025Q4

REPORT INFORMATION
  Report Type: Spontaneous
  Country: CN (occurrence: CN)
  Receive Date: 20251114
  Receipt Date: 20251125
  Transmission Date: 20260118
  Serious: Yes (Hospitalization)
  Sender: ALEXION PHARMACEUTICALS
  Company Number: CN-AstraZeneca-CH-00972408A

PATIENT
  Age: 71 Year
  Sex: Male

DRUGS (1)
  1. BUDESONIDE\FORMOTEROL\GLYCOPYRRONIUM [Suspect]
     Active Substance: BUDESONIDE\FORMOTEROL\GLYCOPYRRONIUM
     Indication: Chronic obstructive pulmonary disease
     Dosage: 160?G/7.2?G/4.8?G/ACTUATION, 120 ACTUATIONS/BOTTLE, 1 BOTTLE/BOX,
     Route: 065

REACTIONS (10)
  - Dysgeusia [Unknown]
  - Product taste abnormal [Unknown]
  - Feeling abnormal [Unknown]
  - Drug ineffective [Unknown]
  - Wrong technique in device usage process [Unknown]
  - Wrong technique in product usage process [Unknown]
  - Dyspnoea [Unknown]
  - Abdominal distension [Unknown]
  - Choking sensation [Unknown]
  - Exophthalmos [Unknown]
